FAERS Safety Report 6573967-3 (Version None)
Quarter: 2010Q1

REPORT INFORMATION
  Report Type: 
  Country: None (occurrence: None)
  Receive Date: 20100204
  Receipt Date: 20100204
  Transmission Date: 20100710
  Serious: Yes (Life-Threatening, Hospitalization)
  Sender: FDA-Public Use
  Company Number: None

PATIENT
  Age: 61 Year
  Sex: Male
  Weight: 130.8 kg

DRUGS (1)
  1. SULFAMETHOXAZOLE AND TRIMETHOPRIM [Suspect]
     Indication: NEURODERMATITIS
     Dosage: 800/160 MG BID PO
     Route: 048
     Dates: start: 20090801, end: 20090909

REACTIONS (3)
  - CARDIAC ARREST [None]
  - DIALYSIS [None]
  - RENAL FAILURE ACUTE [None]
